FAERS Safety Report 10258604 (Version 3)
Quarter: 2015Q4

REPORT INFORMATION
  Report Type: Spontaneous
  Country: US (occurrence: US)
  Receive Date: 20140625
  Receipt Date: 20151007
  Transmission Date: 20160304
  Serious: Yes (Other)
  Sender: FDA-Public Use
  Company Number: ALCN1998US000632

PATIENT
  Age: 37 Year
  Sex: Male
  Weight: 72.59 kg

DRUGS (3)
  1. FML [Concomitant]
     Active Substance: FLUOROMETHOLONE
     Indication: CONJUNCTIVITIS
     Dosage: UNK
     Route: 047
  2. TOBRADEX [Suspect]
     Active Substance: DEXAMETHASONE\TOBRAMYCIN
     Indication: CONJUNCTIVITIS VIRAL
     Dosage: 1 GTT, Q4H
     Route: 047
     Dates: start: 19941026, end: 19950505
  3. TOBRADEX [Suspect]
     Active Substance: DEXAMETHASONE\TOBRAMYCIN
     Indication: CONJUNCTIVITIS ALLERGIC
     Dosage: 1 GTT, QD
     Route: 047
     Dates: start: 19950505

REACTIONS (4)
  - Product use issue [Unknown]
  - Blindness [Not Recovered/Not Resolved]
  - Drug dispensing error [Unknown]
  - Cataract [Recovered/Resolved]

NARRATIVE: CASE EVENT DATE: 199512
